FAERS Safety Report 18016137 (Version 1)
Quarter: 2020Q3

REPORT INFORMATION
  Report Type: Spontaneous
  Country: GB (occurrence: GB)
  Receive Date: 20200714
  Receipt Date: 20200714
  Transmission Date: 20201103
  Serious: Yes (Life-Threatening)
  Sender: FDA-Public Use
  Company Number: GB-SUN PHARMACEUTICAL INDUSTRIES LTD-2020RR-253361

PATIENT
  Age: 62 Year
  Sex: Female
  Weight: 72 kg

DRUGS (22)
  1. CARBOCISTEINE [Concomitant]
     Active Substance: CARBOCYSTEINE
     Indication: PRODUCT USED FOR UNKNOWN INDICATION
     Dosage: 4 DOSAGE FORM, DAILY
     Route: 065
     Dates: start: 20191018
  2. RAMIPRIL. [Concomitant]
     Active Substance: RAMIPRIL
     Indication: PRODUCT USED FOR UNKNOWN INDICATION
     Dosage: 1 DOSAGE FORM, DAILY
     Route: 065
     Dates: start: 20191018
  3. DOXYCYCLINE. [Concomitant]
     Active Substance: DOXYCYCLINE
     Indication: PRODUCT USED FOR UNKNOWN INDICATION
     Dosage: FOR A 2 WEEK COURSE. ; AS NECESSARY
     Route: 065
     Dates: start: 20191018
  4. PARACETAMOL [Concomitant]
     Active Substance: ACETAMINOPHEN
     Indication: PRODUCT USED FOR UNKNOWN INDICATION
     Dosage: FOUR TIMES DAILY. ; AS NECESSARY
     Route: 065
     Dates: start: 20191018
  5. CLOPIDOGREL [Concomitant]
     Active Substance: CLOPIDOGREL BISULFATE
     Indication: PRODUCT USED FOR UNKNOWN INDICATION
     Dosage: 1 DOSAGE FORM, DAILY
     Route: 065
     Dates: start: 20191018
  6. LANSOPRAZOLE. [Suspect]
     Active Substance: LANSOPRAZOLE
     Indication: PRODUCT USED FOR UNKNOWN INDICATION
     Dosage: 30 MILLIGRAM, UNK
     Route: 065
     Dates: start: 20200131
  7. FOSTAIR [Concomitant]
     Active Substance: BECLOMETHASONE\FORMOTEROL
     Indication: PRODUCT USED FOR UNKNOWN INDICATION
     Dosage: 4 DOSAGE FORM, DAILY
     Route: 065
     Dates: start: 20191018
  8. SIMVASTATIN. [Concomitant]
     Active Substance: SIMVASTATIN
     Indication: PRODUCT USED FOR UNKNOWN INDICATION
     Dosage: AT NIGHT
     Route: 065
     Dates: start: 20191018
  9. ISOSORBIDE MONONITRATE. [Concomitant]
     Active Substance: ISOSORBIDE MONONITRATE
     Indication: PRODUCT USED FOR UNKNOWN INDICATION
     Dosage: 2 DOSAGE FORM, DAILY
     Route: 065
     Dates: start: 20191018
  10. BISOPROLOL [Concomitant]
     Active Substance: BISOPROLOL
     Indication: PRODUCT USED FOR UNKNOWN INDICATION
     Dosage: 2 DOSAGE FORM, DAILY
     Route: 065
     Dates: start: 20191018
  11. BISACODYL. [Concomitant]
     Active Substance: BISACODYL
     Indication: PRODUCT USED FOR UNKNOWN INDICATION
     Dosage: AT NIGHT.
     Route: 065
     Dates: start: 20191018
  12. LEVOTHYROXINE. [Concomitant]
     Active Substance: LEVOTHYROXINE
     Indication: PRODUCT USED FOR UNKNOWN INDICATION
     Dosage: 75MCG/100MCG ON ALTERNATE DAYS ON ONCE DAILY
     Route: 065
     Dates: start: 20191018
  13. HYLO?FORTE [Concomitant]
     Active Substance: HYALURONATE SODIUM
     Indication: PRODUCT USED FOR UNKNOWN INDICATION
     Dosage: INTO THE AFFECTED EYE(S) WHEN NEED... ; AS NECESSARY
     Route: 065
     Dates: start: 20191018
  14. AMOXICILLIN. [Suspect]
     Active Substance: AMOXICILLIN
     Indication: PRODUCT USED FOR UNKNOWN INDICATION
     Dosage: 500 MILLIGRAM, UNK
     Route: 065
     Dates: start: 20200131
  15. TILDIEM [Concomitant]
     Active Substance: DILTIAZEM HYDROCHLORIDE
     Indication: PRODUCT USED FOR UNKNOWN INDICATION
     Dosage: 1 DOSAGE FORM, DAILY
     Route: 065
     Dates: start: 20191018
  16. OMEPRAZOLE. [Concomitant]
     Active Substance: OMEPRAZOLE
     Indication: PRODUCT USED FOR UNKNOWN INDICATION
     Dosage: 1 DOSAGE FORM, DAILY
     Route: 065
     Dates: start: 20191018
  17. CLARITHROMYCIN. [Suspect]
     Active Substance: CLARITHROMYCIN
     Indication: PRODUCT USED FOR UNKNOWN INDICATION
     Dosage: 500 MILLIGRAM, UNK
     Route: 065
     Dates: start: 20200131
  18. PREDNISOLONE. [Concomitant]
     Active Substance: PREDNISOLONE
     Indication: PRODUCT USED FOR UNKNOWN INDICATION
     Dosage: ONLY STANDBY...
     Route: 065
     Dates: start: 20191018
  19. FULTIUM?D3 [Concomitant]
     Active Substance: CHOLECALCIFEROL
     Indication: PRODUCT USED FOR UNKNOWN INDICATION
     Dosage: FOR MAINTENANCE THERAPY ()
     Route: 065
     Dates: start: 20191018
  20. BRALTUS [Concomitant]
     Active Substance: TIOTROPIUM BROMIDE
     Indication: PRODUCT USED FOR UNKNOWN INDICATION
     Dosage: 1 DOSAGE FORM, DAILY
     Route: 055
     Dates: start: 20191018
  21. CITALOPRAM [Concomitant]
     Active Substance: CITALOPRAM HYDROBROMIDE
     Indication: PRODUCT USED FOR UNKNOWN INDICATION
     Dosage: 1 IN THE MORNING.
     Route: 065
     Dates: start: 20191127
  22. GLYCERYL TRINITRATE [Concomitant]
     Active Substance: NITROGLYCERIN
     Indication: PRODUCT USED FOR UNKNOWN INDICATION
     Dosage: 1 ? 2 SPRAYS. () ; AS NECESSARY
     Route: 065
     Dates: start: 20191018

REACTIONS (1)
  - Swelling [Unknown]

NARRATIVE: CASE EVENT DATE: 20200522
